FAERS Safety Report 20386256 (Version 1)
Quarter: 2022Q1

REPORT INFORMATION
  Report Type: Spontaneous
  Country: US (occurrence: US)
  Receive Date: 20220127
  Receipt Date: 20220127
  Transmission Date: 20220423
  Serious: No
  Sender: FDA-Public Use
  Company Number: US-ALLERGAN-2132862US

PATIENT
  Age: 70 Year
  Sex: Female

DRUGS (4)
  1. BOTOX COSMETIC [Suspect]
     Active Substance: ONABOTULINUMTOXINA
     Indication: Skin wrinkling
     Dosage: 20 UNITS, SINGLE
     Dates: start: 20210913, end: 20210913
  2. BOTOX COSMETIC [Suspect]
     Active Substance: ONABOTULINUMTOXINA
     Indication: Skin wrinkling
     Dosage: 5 UNITS, SINGLE
     Dates: start: 20210913, end: 20210913
  3. ATORVASTATIN [Concomitant]
     Active Substance: ATORVASTATIN
     Indication: Hyperlipidaemia
  4. LOSARTAN [Concomitant]
     Active Substance: LOSARTAN
     Indication: Hypertension

REACTIONS (10)
  - Herpes zoster [Recovering/Resolving]
  - Musculoskeletal discomfort [Recovering/Resolving]
  - Product preparation error [Unknown]
  - Off label use [Unknown]
  - Erythema [Recovering/Resolving]
  - Pruritus [Recovering/Resolving]
  - Injection site erythema [Recovering/Resolving]
  - Injection site pruritus [Recovering/Resolving]
  - Pain of skin [Not Recovered/Not Resolved]
  - Rash [Recovering/Resolving]

NARRATIVE: CASE EVENT DATE: 20210913
